FAERS Safety Report 19736862 (Version 3)
Quarter: 2021Q3

REPORT INFORMATION
  Report Type: Report from Study
  Country: JP (occurrence: JP)
  Receive Date: 20210823
  Receipt Date: 20210903
  Transmission Date: 20211014
  Serious: Yes (Hospitalization)
  Sender: FDA-Public Use
  Company Number: JP-PFIZER INC-2021031483

PATIENT
  Age: 46 Year
  Sex: Male
  Weight: 70 kg

DRUGS (10)
  1. CALONAL [Concomitant]
     Active Substance: ACETAMINOPHEN
     Dosage: 500 MG, 3X/DAY (EVERY 8 HR)
     Route: 048
     Dates: start: 20201214
  2. LOXOPROFEN NA [Concomitant]
     Active Substance: LOXOPROFEN SODIUM
     Indication: PAIN
     Dosage: 3 DF, 1X/DAY
     Route: 065
     Dates: start: 202001
  3. LOXOPROFEN [Concomitant]
     Active Substance: LOXOPROFEN
     Dosage: 60 MG, 3X/DAY (EVERY 8 HR)
     Route: 048
     Dates: start: 20201214
  4. TRAMCET [Concomitant]
     Active Substance: ACETAMINOPHEN\TRAMADOL
     Indication: PAIN
     Dosage: 1 DF, 4X/DAY (EVERY 6 HR)
     Route: 048
     Dates: start: 202001
  5. RAPALIMUS [Suspect]
     Active Substance: SIROLIMUS
     Dosage: 2 MG, 1X/DAY
     Route: 048
     Dates: start: 20201226
  6. CALONAL [Concomitant]
     Active Substance: ACETAMINOPHEN
     Indication: PAIN
     Dosage: 500 MG, 3X/DAY (EVERY 8 HR)
     Route: 048
     Dates: start: 202001
  7. TRAMCET [Concomitant]
     Active Substance: ACETAMINOPHEN\TRAMADOL
     Dosage: 1 DF, 4X/DAY (EVERY 6 HR)
     Route: 048
     Dates: start: 20201214
  8. RAPALIMUS [Suspect]
     Active Substance: SIROLIMUS
     Indication: GORHAM^S DISEASE
     Dosage: 2 MG, 1X/DAY (AFTER BREAKFAST)
     Route: 048
     Dates: start: 20200527, end: 20201214
  9. REBAMIPIDE [Concomitant]
     Active Substance: REBAMIPIDE
     Indication: GASTRIC ULCER
     Dosage: 100 MG, 3X/DAY (EVERY 8 HR)
     Route: 048
     Dates: start: 202001
  10. LOXOPROFEN [Concomitant]
     Active Substance: LOXOPROFEN
     Indication: PAIN
     Dosage: 60 MG, 3X/DAY (EVERY 8 HR)
     Route: 048
     Dates: start: 202001

REACTIONS (2)
  - Spondylitis [Recovered/Resolved]
  - Pneumonia haemophilus [Recovered/Resolved]

NARRATIVE: CASE EVENT DATE: 20201208
